FAERS Safety Report 17962140 (Version 1)
Quarter: 2020Q2

REPORT INFORMATION
  Report Type: Spontaneous
  Country: US (occurrence: US)
  Receive Date: 20200629
  Receipt Date: 20200629
  Transmission Date: 20200714
  Serious: No
  Sender: FDA-Public Use
  Company Number: None

PATIENT
  Age: 38 Year
  Sex: Female
  Weight: 69.4 kg

DRUGS (1)
  1. BENLYSTA [Suspect]
     Active Substance: BELIMUMAB
     Indication: SYSTEMIC LUPUS ERYTHEMATOSUS
     Dosage: ?          OTHER FREQUENCY:EVERY 14 DAYS X3;?
     Route: 041
     Dates: start: 20200617

REACTIONS (6)
  - Limb discomfort [None]
  - Infusion related reaction [None]
  - Dysphonia [None]
  - Sinus congestion [None]
  - Paraesthesia [None]
  - Nasal congestion [None]

NARRATIVE: CASE EVENT DATE: 20200629
